FAERS Safety Report 5884661-6 (Version None)
Quarter: 2008Q3

REPORT INFORMATION
  Report Type: 
  Country: None (occurrence: None)
  Receive Date: 20080915
  Receipt Date: 20080915
  Transmission Date: 20090109
  Serious: Yes (Other)
  Sender: FDA-Public Use
  Company Number: None

PATIENT
  Sex: Female
  Weight: 87.9978 kg

DRUGS (2)
  1. ZYRTEC-D 12 HOUR [Suspect]
     Indication: ASTHMA
     Dosage: 1 DAILY PO
     Route: 048
     Dates: start: 20040517, end: 20080909
  2. ZYRTEC-D 12 HOUR [Suspect]
     Indication: MULTIPLE ALLERGIES
     Dosage: 1 DAILY PO
     Route: 048
     Dates: start: 20040517, end: 20080909

REACTIONS (5)
  - ACTIVITIES OF DAILY LIVING IMPAIRED [None]
  - DISCOMFORT [None]
  - FEELING ABNORMAL [None]
  - INSOMNIA [None]
  - PRURITUS [None]
